FAERS Safety Report 7514859-2 (Version None)
Quarter: 2011Q2

REPORT INFORMATION
  Report Type: 
  Country: None (occurrence: None)
  Receive Date: 20110601
  Receipt Date: 20101220
  Transmission Date: 20111010
  Serious: No
  Sender: FDA-Public Use
  Company Number: US-NOVEN-ALL1-2010-06557

PATIENT
  Sex: Male
  Weight: 24.9 kg

DRUGS (5)
  1. DAYTRANA [Suspect]
     Indication: ATTENTION DEFICIT/HYPERACTIVITY DISORDER
     Dosage: 20 MG, QD
     Route: 062
     Dates: start: 20101218
  2. INTUNIV [Concomitant]
     Dosage: UNK
     Dates: start: 20090101, end: 20090101
  3. MELATONIN [Concomitant]
     Dosage: UNK
     Dates: start: 20100601
  4. INTUNIV [Concomitant]
     Dosage: UNK
     Dates: start: 20090101
  5. INTUNIV [Concomitant]
     Dosage: UNK
     Dates: start: 20090101, end: 20090101

REACTIONS (3)
  - DRUG INEFFECTIVE [None]
  - DRUG ADMINISTERED AT INAPPROPRIATE SITE [None]
  - PRODUCT QUALITY ISSUE [None]
